FAERS Safety Report 7958246-1 (Version None)
Quarter: 2011Q4

REPORT INFORMATION
  Report Type: 
  Country: None (occurrence: None)
  Receive Date: 20111205
  Receipt Date: 20111202
  Transmission Date: 20120403
  Serious: Yes (Death, Hospitalization)
  Sender: FDA-Public Use
  Company Number: GB-GENZYME-CLOF-1001929

PATIENT
  Sex: Male

DRUGS (4)
  1. EVOLTRA [Suspect]
     Dosage: CYCLE 2
     Route: 065
     Dates: start: 20100803
  2. EVOLTRA [Suspect]
     Indication: ACUTE LEUKAEMIA
     Dosage: CYCLE 1
     Route: 065
     Dates: start: 20100628
  3. CYTARABINE [Suspect]
     Dosage: CYCLE 2 (LOW-DOSE)
     Route: 065
     Dates: start: 20101105
  4. CYTARABINE [Suspect]
     Indication: ACUTE LEUKAEMIA
     Dosage: CYCLE 1 (LOW-DOSE)
     Route: 065
     Dates: start: 20101005

REACTIONS (2)
  - NEUTROPENIC SEPSIS [None]
  - ACUTE LEUKAEMIA [None]
